FAERS Safety Report 20876654 (Version 1)
Quarter: 2022Q2

REPORT INFORMATION
  Report Type: Spontaneous
  Country: US (occurrence: None)
  Receive Date: 20220526
  Receipt Date: 20220526
  Transmission Date: 20220720
  Serious: Yes (Hospitalization, Other)
  Sender: FDA-Public Use
  Company Number: 2022A198623

PATIENT
  Age: 41 Year
  Sex: Female

DRUGS (1)
  1. EVUSHELD [Suspect]
     Active Substance: CILGAVIMAB\TIXAGEVIMAB
     Indication: COVID-19 prophylaxis
     Dosage: STARTED EVUSHELD ON 28/4600.0MG ONCE/SINGLE ADMINISTRATION
     Route: 030

REACTIONS (6)
  - Platelet count decreased [Unknown]
  - Haemolytic anaemia [Unknown]
  - Blood lactate dehydrogenase increased [Unknown]
  - Haptoglobin decreased [Unknown]
  - White blood cell count increased [Unknown]
  - Infection [Unknown]

NARRATIVE: CASE EVENT DATE: 20220501
